FAERS Safety Report 5939289-6 (Version None)
Quarter: 2008Q4

REPORT INFORMATION
  Report Type: 
  Country: None (occurrence: None)
  Receive Date: 20081103
  Receipt Date: 20081021
  Transmission Date: 20090506
  Serious: Yes (Death, Other)
  Sender: FDA-Public Use
  Company Number: CA-ELI_LILLY_AND_COMPANY-CA200804000325

PATIENT
  Age: 59 Year
  Sex: Female
  Weight: 63 kg

DRUGS (12)
  1. CYMBALTA [Suspect]
     Dosage: 1 D/F, UNK
  2. ASPIRIN [Concomitant]
  3. MICARDIS [Concomitant]
  4. GABAPENTIN [Concomitant]
  5. CARVEDILOL [Concomitant]
  6. AMITRIPTYLINE HCL [Concomitant]
  7. PENTOXIFYLLINE [Concomitant]
  8. NIFEDIPINE [Concomitant]
  9. CODEINE SUL TAB [Concomitant]
  10. PREVACID [Concomitant]
  11. ETHANOL [Interacting]
  12. ZOPICLONE [Interacting]

REACTIONS (7)
  - CORONARY ARTERY DISEASE [None]
  - DIABETES MELLITUS [None]
  - DRUG INTERACTION [None]
  - DRUG TOXICITY [None]
  - HYPERTENSION [None]
  - PANCREATITIS CHRONIC [None]
  - RENAL ATROPHY [None]
